FAERS Safety Report 21186392 (Version 2)
Quarter: 2022Q3

REPORT INFORMATION
  Report Type: Report from Study
  Country: JP (occurrence: JP)
  Receive Date: 20220808
  Receipt Date: 20220829
  Transmission Date: 20221027
  Serious: Yes (Hospitalization, Other)
  Sender: FDA-Public Use
  Company Number: JP-BAXTER-2022BAX016736

PATIENT
  Age: 80 Year
  Sex: Female

DRUGS (19)
  1. CYCLOPHOSPHAMIDE [Suspect]
     Active Substance: CYCLOPHOSPHAMIDE
     Indication: Microscopic polyangiitis
     Dosage: 460 MG
     Route: 042
     Dates: start: 20210903, end: 20210903
  2. CYCLOPHOSPHAMIDE [Suspect]
     Active Substance: CYCLOPHOSPHAMIDE
     Dosage: 420 MG
     Route: 042
     Dates: start: 20220107, end: 20220107
  3. AZATHIOPRINE [Suspect]
     Active Substance: AZATHIOPRINE
     Indication: Microscopic polyangiitis
     Dosage: 50 MG
     Route: 065
     Dates: start: 20220205, end: 20220726
  4. PREDNISOLONE [Suspect]
     Active Substance: PREDNISOLONE
     Indication: Microscopic polyangiitis
     Dosage: 38 MG
     Route: 048
     Dates: start: 20210903
  5. PREDNISOLONE [Suspect]
     Active Substance: PREDNISOLONE
     Dosage: 7.5 MG
     Route: 048
     Dates: start: 20220122
  6. PREDNISOLONE [Suspect]
     Active Substance: PREDNISOLONE
     Dosage: 80 MG/DAY, DOSE WAS INCREASED
     Route: 065
     Dates: start: 20220730
  7. PREDNISOLONE [Suspect]
     Active Substance: PREDNISOLONE
     Dosage: 40 MG/DAY, DOSE REDUCED
     Route: 065
     Dates: start: 20220804
  8. PREDNISOLONE [Suspect]
     Active Substance: PREDNISOLONE
     Dosage: 20 MG/DAY
     Route: 065
     Dates: start: 20220809
  9. PREDNISOLONE [Suspect]
     Active Substance: PREDNISOLONE
     Dosage: 7.5 MG/DAY
     Route: 065
     Dates: start: 20220820
  10. ONEALFA [Concomitant]
     Active Substance: ALFACALCIDOL
     Indication: Prophylaxis
     Dosage: 0.5 MCG/DAY
     Route: 048
     Dates: start: 20210903
  11. NEXIUM [Concomitant]
     Active Substance: ESOMEPRAZOLE MAGNESIUM
     Indication: Prophylaxis
     Dosage: 20 MG/DAY
     Route: 048
     Dates: start: 20210903
  12. LULICONAZOLE [Concomitant]
     Active Substance: LULICONAZOLE
     Indication: Dermatophytosis of nail
     Route: 065
  13. LUCONAC [Concomitant]
     Indication: Dermatophytosis of nail
     Route: 065
  14. UREA [Concomitant]
     Active Substance: UREA
     Indication: Hand dermatitis
     Route: 065
  15. SPIRONOLACTONE [Concomitant]
     Active Substance: SPIRONOLACTONE
     Indication: Oedema peripheral
     Dosage: 25 MG/DAY
     Route: 048
     Dates: start: 20220709
  16. SODIUM GUALENATE MONOHYDRATE [Concomitant]
     Active Substance: SODIUM GUALENATE MONOHYDRATE
     Indication: Prophylaxis
     Dosage: UNK
     Route: 065
     Dates: start: 20211113
  17. GLYCOSAMINOGLYCANS [Concomitant]
     Active Substance: GLYCOSAMINOGLYCANS
     Indication: Asteatosis
     Dosage: UNK
     Route: 065
     Dates: start: 20210221
  18. LASIX [Concomitant]
     Active Substance: FUROSEMIDE
     Indication: Oedema peripheral
     Dosage: 10 MG/DAY
     Route: 048
     Dates: start: 20220514
  19. ZINC [Concomitant]
     Active Substance: ZINC
     Indication: Taste disorder
     Dosage: 25 MG/DAY
     Route: 048
     Dates: start: 20220611

REACTIONS (4)
  - Pneumocystis jirovecii pneumonia [Recovered/Resolved]
  - Cough [Not Recovered/Not Resolved]
  - Pyrexia [Not Recovered/Not Resolved]
  - Headache [Not Recovered/Not Resolved]

NARRATIVE: CASE EVENT DATE: 20220722
